FAERS Safety Report 4497316-X (Version None)
Quarter: 2004Q4

REPORT INFORMATION
  Report Type: 
  Country: None (occurrence: None)
  Receive Date: 20041110
  Receipt Date: 20041110
  Transmission Date: 20050328
  Serious: Yes (Life-Threatening, Hospitalization)
  Sender: FDA-Public Use
  Company Number: None

PATIENT
  Age: 67 Year
  Sex: Female
  Weight: 101 kg

DRUGS (3)
  1. CRESTOR [Suspect]
     Indication: HYPERLIPIDAEMIA
     Dosage: 20 MG ONCE DAILY ORAL
     Route: 048
     Dates: start: 20041010, end: 20041104
  2. TRICOR [Suspect]
     Dosage: 54 MG ONCE DAILY ORAL
     Route: 048
     Dates: start: 20041010, end: 20041104
  3. BENICAR [Concomitant]

REACTIONS (4)
  - CARDIAC FAILURE [None]
  - MYOCARDITIS [None]
  - RENAL FAILURE ACUTE [None]
  - RHABDOMYOLYSIS [None]
